FAERS Safety Report 6393317 (Version 17)
Quarter: 2013Q3

REPORT INFORMATION
  Report Type: Spontaneous
  Country: US (occurrence: US)
  Receive Date: 20070829
  Receipt Date: 20130726
  Transmission Date: 20140515
  Serious: Yes (Death, Hospitalization, Other)
  Sender: FDA-Public Use
  Company Number: PHEH2007US11552

PATIENT
  Age: 45 Year
  Sex: Female

DRUGS (25)
  1. ZOMETA [Suspect]
     Dates: end: 200412
  2. COLACE [Concomitant]
     Dosage: 100 MG, BID
     Route: 048
  3. DILAUDID [Concomitant]
     Dosage: 2 MG, PRN
  4. NEXIUM [Concomitant]
     Dosage: 40 MG, QD
     Route: 048
  5. PREDNISONE [Concomitant]
     Dosage: 20 MG, QD
     Route: 048
  6. ATIVAN [Concomitant]
     Dosage: 1 MG, PRN
     Route: 048
  7. PHENERGAN ^AVENTIS PHARMA^ [Concomitant]
     Dosage: 12.5 MG, PRN
     Route: 048
  8. PROPOXYPHENE HCL AND ACETAMINOPHEN [Concomitant]
     Dosage: 100 MG
     Route: 048
  9. CEPHALEXIN [Concomitant]
     Dosage: 205 MG, Q6H
     Route: 048
  10. DEXAMETHASONE [Concomitant]
     Dosage: 40 MG, QD (10EACH 4MG TABS QD)
     Route: 048
  11. OXYCODONE [Concomitant]
     Dosage: 5 MG, PRN
     Route: 048
  12. SULFAMETHOXAZOLE [Concomitant]
     Route: 048
  13. REGLAN                                  /USA/ [Concomitant]
     Dosage: 10 MG, PRN
     Route: 048
  14. AZITHROMYCIN [Concomitant]
     Dosage: 250 MG, QD
     Route: 048
  15. LORAZEPAM [Concomitant]
     Dosage: 1 MG, PRN
     Route: 048
  16. PROMETHAZINE [Concomitant]
     Dosage: 25 MG, PRN
     Route: 048
  17. ZOFRAN [Concomitant]
     Dosage: 8 MG, PRN
     Route: 048
  18. TRAMADOL [Concomitant]
     Dosage: 100 MG, QID
     Route: 048
  19. LEVAQUIN [Concomitant]
     Dosage: 500 MG, QD
     Route: 048
  20. PANTOPRAZOLE [Concomitant]
     Dosage: 80 MG, TID
     Route: 048
  21. FLUCONAZOLE [Concomitant]
     Dosage: 100 MG, QD
     Route: 048
  22. NYSTATIN [Concomitant]
     Dosage: 100000 U, QD
     Route: 048
  23. PVK [Concomitant]
     Dosage: 500 MG, QD
     Route: 048
     Dates: start: 20041213
  24. REVLIMID [Concomitant]
     Dosage: 25 MG, UNK
     Route: 048
  25. DARVOCET-N [Concomitant]

REACTIONS (87)
  - Death [Fatal]
  - Pneumonia [Unknown]
  - Lung infiltration [Unknown]
  - Respiratory distress [Unknown]
  - Cardiomegaly [Unknown]
  - Cardiac failure [Unknown]
  - Plasma cell myeloma [Unknown]
  - Bone pain [Unknown]
  - Spondylolisthesis [Unknown]
  - Metastases to bone [Unknown]
  - Spinal compression fracture [Unknown]
  - Fracture [Unknown]
  - Nasal sinus cancer [Unknown]
  - Urinary tract infection [Unknown]
  - Emphysema [Unknown]
  - Osteonecrosis of jaw [Unknown]
  - Injury [Unknown]
  - Pain [Unknown]
  - Anxiety [Unknown]
  - Anhedonia [Unknown]
  - Pain in jaw [Unknown]
  - Osteomyelitis [Unknown]
  - Tooth fracture [Unknown]
  - Bone disorder [Unknown]
  - Dental caries [Unknown]
  - Anaemia [Unknown]
  - Chronic sinusitis [Unknown]
  - Thrombocytopenia [Unknown]
  - Conjunctivitis [Unknown]
  - Bronchitis [Unknown]
  - Nausea [Unknown]
  - Vomiting [Unknown]
  - Proteinuria [Unknown]
  - Haematuria [Unknown]
  - Flank pain [Unknown]
  - Ovarian cyst [Unknown]
  - Blood creatinine increased [Unknown]
  - Hypogammaglobulinaemia [Unknown]
  - Rash [Unknown]
  - Vaginal haemorrhage [Unknown]
  - Hypoaesthesia [Unknown]
  - Pain in extremity [Unknown]
  - Paraesthesia [Unknown]
  - Haemorrhage [Unknown]
  - Osteolysis [Unknown]
  - Vitamin B12 decreased [Unknown]
  - Amino acid level increased [Unknown]
  - Azotaemia [Unknown]
  - Herpes zoster [Unknown]
  - Metastases to spine [Unknown]
  - Pathological fracture [Unknown]
  - Exophthalmos [Unknown]
  - Ocular neoplasm [Unknown]
  - Brain mass [Unknown]
  - Plasmacytosis [Unknown]
  - Fibrous dysplasia of bone [Unknown]
  - Lumbar spinal stenosis [Unknown]
  - Intervertebral disc protrusion [Unknown]
  - Facet joint syndrome [Unknown]
  - Intervertebral disc degeneration [Unknown]
  - Bursitis [Unknown]
  - Atelectasis [Unknown]
  - Fall [Unknown]
  - Humerus fracture [Unknown]
  - Sepsis [Unknown]
  - Pneumonitis [Unknown]
  - Sinus tachycardia [Unknown]
  - Soft tissue disorder [Unknown]
  - Soft tissue inflammation [Unknown]
  - Neuropathy peripheral [Unknown]
  - Excoriation [Unknown]
  - Pubis fracture [Unknown]
  - Upper respiratory tract infection [Unknown]
  - Respiratory tract congestion [Unknown]
  - Cutis laxa [Unknown]
  - Forearm fracture [Unknown]
  - Cyst [Unknown]
  - Periorbital haemorrhage [Unknown]
  - Eyelid oedema [Unknown]
  - Osteopenia [Unknown]
  - Conjunctivochalasis [Unknown]
  - Cataract nuclear [Unknown]
  - Abdominal mass [Unknown]
  - Rib fracture [Unknown]
  - Excessive granulation tissue [Unknown]
  - Bone fragmentation [Unknown]
  - Joint swelling [Unknown]
